FAERS Safety Report 9475879 (Version 1)
Quarter: 2013Q3

REPORT INFORMATION
  Report Type: Spontaneous
  Country: US (occurrence: US)
  Receive Date: 20130826
  Receipt Date: 20130826
  Transmission Date: 20140515
  Serious: Yes (Other)
  Sender: FDA-Public Use
  Company Number: US-PFIZER INC-2013245787

PATIENT
  Age: 43 Year
  Sex: Female
  Weight: 62.59 kg

DRUGS (9)
  1. RELPAX [Suspect]
     Indication: MIGRAINE
     Dosage: 40 MG, UNK
     Dates: start: 201212
  2. DEMEROL [Suspect]
     Dosage: UNK
  3. TIROSINT [Concomitant]
     Indication: THYROID DISORDER
     Dosage: 100 UG/DAY
  4. DIAZEPAM [Concomitant]
     Indication: ANXIETY
     Dosage: 10 MG, 3X/DAY
  5. DOXYCYCLINE [Concomitant]
     Dosage: 200 MG/DAY
  6. PROMETHAZINE [Concomitant]
     Indication: NAUSEA
     Dosage: 25 MG, UNK
  7. ACETAMINOPHEN W/OXYCODONE [Concomitant]
     Indication: PAIN
     Dosage: 10/325MG, 3X/DAY
  8. TEMAZEPAM [Concomitant]
     Indication: INSOMNIA
     Dosage: 60 MG/DAY
  9. FENTANYL [Concomitant]
     Indication: PAIN
     Dosage: UNK,EVERY THREE DAYS

REACTIONS (3)
  - Convulsion [Unknown]
  - Drug hypersensitivity [Unknown]
  - Migraine [Unknown]
